FAERS Safety Report 17921710 (Version 1)
Quarter: 2020Q2

REPORT INFORMATION
  Report Type: Spontaneous
  Country: PL (occurrence: PL)
  Receive Date: 20200622
  Receipt Date: 20200622
  Transmission Date: 20200714
  Serious: Yes (Other)
  Sender: FDA-Public Use
  Company Number: PL-NOVAST LABORATORIES LTD.-2020NOV000269

PATIENT
  Age: 21 Year
  Sex: Female
  Weight: 43.7 kg

DRUGS (3)
  1. DUPHASTON [Concomitant]
     Active Substance: DYDROGESTERONE
     Indication: AMENORRHOEA
     Dosage: UNK
     Route: 065
  2. METFORMIN [Suspect]
     Active Substance: METFORMIN HYDROCHLORIDE
     Indication: MENSTRUAL DISORDER
  3. METFORMIN [Suspect]
     Active Substance: METFORMIN HYDROCHLORIDE
     Indication: INSULIN RESISTANCE
     Dosage: 850 MILLIGRAM, BID
     Route: 065

REACTIONS (3)
  - Condition aggravated [Unknown]
  - Product use in unapproved indication [Unknown]
  - Insulin resistance [Unknown]
